FAERS Safety Report 15798761 (Version 2)
Quarter: 2019Q1

REPORT INFORMATION
  Report Type: Report from Study
  Country: US (occurrence: US)
  Receive Date: 20190108
  Receipt Date: 20190214
  Transmission Date: 20190417
  Serious: Yes (Hospitalization)
  Sender: FDA-Public Use
  Company Number: US-BAXTER-2018BAX027944

PATIENT
  Age: 40 Year
  Sex: Female
  Weight: 47 kg

DRUGS (18)
  1. INOTUZUMAB OZOGAMICIN [Suspect]
     Active Substance: INOTUZUMAB OZOGAMICIN
     Dosage: TOTAL DOSE ADMINISTERED THIS COURSE: 1.18 MG
     Route: 042
     Dates: start: 20181024, end: 20181024
  2. VINCRISTINE SULFATE. [Concomitant]
     Active Substance: VINCRISTINE SULFATE
     Indication: B PRECURSOR TYPE ACUTE LEUKAEMIA
     Dosage: FIRST COURSE
     Route: 042
     Dates: start: 20180926
  3. MERCAPTOPURINE. [Concomitant]
     Active Substance: MERCAPTOPURINE
     Indication: CHEMOTHERAPY
     Dosage: RECEIVED 2 CYCLES OF THERAPY FOR INDUCTION ON PROTOCOL E1910
     Route: 065
     Dates: start: 201805, end: 201809
  4. CYCLOPHOSPHAMIDE FOR INJECTION, USP [Suspect]
     Active Substance: CYCLOPHOSPHAMIDE
     Dosage: TOTAL DOSE ADMINISTERED AT THIS COURSE: 1102.5 MG, ON DAY 1 OF EACH CYCLE
     Route: 042
     Dates: start: 20181024, end: 20181024
  5. INOTUZUMAB OZOGAMICIN [Suspect]
     Active Substance: INOTUZUMAB OZOGAMICIN
     Dosage: CYCLIC (OVER 60 MINS ON DAY 8 AND DAY 15)
     Route: 042
  6. CYCLOPHOSPHAMIDE FOR INJECTION, USP [Suspect]
     Active Substance: CYCLOPHOSPHAMIDE
     Indication: CHEMOTHERAPY
     Dosage: RECEIVED 2 CYCLES OF THERAPY FOR INDUCTION ON PROTOCOL E1910
     Route: 042
     Dates: start: 201805, end: 201809
  7. DAUNORUBICIN [Concomitant]
     Active Substance: DAUNORUBICIN
     Indication: CHEMOTHERAPY
     Dosage: RECEIVED 2 CYCLES OF THERAPY FOR INDUCTION ON PROTOCOL E1910
     Route: 065
     Dates: start: 201805, end: 201809
  8. VINCRISTINE SULFATE. [Concomitant]
     Active Substance: VINCRISTINE SULFATE
     Dosage: TOTAL DOSE ADMINISTERED THIS COURSE WAS 2 MG, 1.4 MG /M2 (MAX 2 MG) OVER 10 MINS ON DAY 1
     Route: 042
     Dates: start: 20181024, end: 20181024
  9. CYCLOPHOSPHAMIDE FOR INJECTION, USP [Suspect]
     Active Substance: CYCLOPHOSPHAMIDE
     Indication: B PRECURSOR TYPE ACUTE LEUKAEMIA
     Dosage: FIRST COURSE
     Route: 042
     Dates: start: 20180926
  10. INOTUZUMAB OZOGAMICIN [Suspect]
     Active Substance: INOTUZUMAB OZOGAMICIN
     Indication: B PRECURSOR TYPE ACUTE LEUKAEMIA
     Dosage: FIRST COURSE
     Route: 042
     Dates: start: 20180926
  11. PREDNISONE. [Suspect]
     Active Substance: PREDNISONE
     Indication: B PRECURSOR TYPE ACUTE LEUKAEMIA
     Dosage: FIRST COURSE
     Route: 048
     Dates: start: 20180926
  12. ONCASPAR [Concomitant]
     Active Substance: PEGASPARGASE
     Indication: CHEMOTHERAPY
     Dosage: RECEIVED 2 CYCLES OF THERAPY FOR INDUCTION ON PROTOCOL E1910
     Route: 065
     Dates: start: 201805, end: 201809
  13. BLINATUMOMAB [Concomitant]
     Active Substance: BLINATUMOMAB
     Indication: CHEMOTHERAPY
     Dosage: RECEIVED 2 CYCLES OF THERAPY FOR INDUCTION ON PROTOCOL E1910
     Route: 065
     Dates: start: 201805, end: 201809
  14. BLINATUMOMAB [Concomitant]
     Active Substance: BLINATUMOMAB
     Dosage: REINDUCTION WITH BLINATUMOMAB X1 CYCLES
     Route: 065
  15. METHOTREXATE. [Concomitant]
     Active Substance: METHOTREXATE
     Indication: CHEMOTHERAPY
     Route: 065
     Dates: start: 201805, end: 201809
  16. DEXAMETHASONE. [Concomitant]
     Active Substance: DEXAMETHASONE
     Indication: CHEMOTHERAPY
     Dosage: RECEIVED 2 CYCLES OF THERAPY FOR INDUCTION ON PROTOCOL E1910
     Route: 065
     Dates: start: 201805, end: 201809
  17. CYTARABINE. [Concomitant]
     Active Substance: CYTARABINE
     Indication: CHEMOTHERAPY
     Dosage: RECEIVED 2 CYCLES OF THERAPY FOR INDUCTION ON PROTOCOL E1910
     Route: 065
     Dates: start: 201805, end: 201809
  18. PREDNISONE. [Suspect]
     Active Substance: PREDNISONE
     Dosage: TOTAL DOSE ADMINISTERED THIS COURSE: 500 MG
     Route: 048
     Dates: start: 20181024, end: 20181028

REACTIONS (3)
  - Syncope [Recovered/Resolved]
  - Anaemia [Recovering/Resolving]
  - Bacterial sepsis [Recovered/Resolved]

NARRATIVE: CASE EVENT DATE: 20181027
